FAERS Safety Report 20073134 (Version 1)
Quarter: 2021Q4

REPORT INFORMATION
  Report Type: Spontaneous
  Country: US (occurrence: US)
  Receive Date: 20211116
  Receipt Date: 20211116
  Transmission Date: 20220303
  Serious: Yes (Other)
  Sender: FDA-Public Use
  Company Number: US-GLAXOSMITHKLINE-US2021GSK235151

PATIENT
  Sex: Female

DRUGS (20)
  1. ZANTAC [Suspect]
     Active Substance: RANITIDINE HYDROCHLORIDE
     Indication: Dyspepsia
     Dosage: TOOK DAILY WHEN I WAS YOUNGER / TOOK OCCASIONALLY OR AS NEEDED IN THE PAST 10 YRS|25 MG|BOTH
     Route: 065
     Dates: start: 198001, end: 201910
  2. ZANTAC [Suspect]
     Active Substance: RANITIDINE HYDROCHLORIDE
     Indication: Dyspepsia
     Dosage: TOOK DAILY WHEN I WAS YOUNGER / TOOK OCCASIONALLY OR AS NEEDED IN THE PAST 10 YRS|75 MG|BOTH
     Route: 065
     Dates: start: 198001, end: 201910
  3. ZANTAC [Suspect]
     Active Substance: RANITIDINE HYDROCHLORIDE
     Indication: Abdominal discomfort
     Dosage: 150 MG, QD
     Route: 065
     Dates: start: 198001, end: 201910
  4. ZANTAC [Suspect]
     Active Substance: RANITIDINE HYDROCHLORIDE
     Indication: Gastrooesophageal reflux disease
     Dosage: UNK
  5. ZANTAC [Suspect]
     Active Substance: RANITIDINE HYDROCHLORIDE
     Indication: Dyspepsia
     Dosage: TOOK DAILY WHEN I WAS YOUNGER / TOOK OCCASIONALLY OR AS NEEDED IN THE PAST 10 YRS|25 MG|BOTH
     Route: 065
     Dates: start: 198001, end: 201910
  6. ZANTAC [Suspect]
     Active Substance: RANITIDINE HYDROCHLORIDE
     Indication: Dyspepsia
     Dosage: TOOK DAILY WHEN I WAS YOUNGER / TOOK OCCASIONALLY OR AS NEEDED IN THE PAST 10 YRS|75 MG|BOTH
     Route: 065
     Dates: start: 198001, end: 201910
  7. ZANTAC [Suspect]
     Active Substance: RANITIDINE HYDROCHLORIDE
     Indication: Abdominal discomfort
     Dosage: 150 MG, QD
     Route: 065
     Dates: start: 198001, end: 201910
  8. ZANTAC [Suspect]
     Active Substance: RANITIDINE HYDROCHLORIDE
     Indication: Gastrooesophageal reflux disease
     Dosage: UNK
  9. ZANTAC [Suspect]
     Active Substance: RANITIDINE HYDROCHLORIDE
     Indication: Dyspepsia
     Dosage: TOOK DAILY WHEN I WAS YOUNGER / TOOK OCCASIONALLY OR AS NEEDED IN THE PAST 10 YRS|25 MG|BOTH
     Route: 065
     Dates: start: 198001, end: 201910
  10. ZANTAC [Suspect]
     Active Substance: RANITIDINE HYDROCHLORIDE
     Indication: Dyspepsia
     Dosage: TOOK DAILY WHEN I WAS YOUNGER / TOOK OCCASIONALLY OR AS NEEDED IN THE PAST 10 YRS|75 MG|BOTH
     Route: 065
     Dates: start: 198001, end: 201910
  11. ZANTAC [Suspect]
     Active Substance: RANITIDINE HYDROCHLORIDE
     Indication: Abdominal discomfort
     Dosage: 150 MG, QD
     Route: 065
     Dates: start: 198001, end: 201910
  12. ZANTAC [Suspect]
     Active Substance: RANITIDINE HYDROCHLORIDE
     Indication: Gastrooesophageal reflux disease
     Dosage: UNK
  13. RANITIDINE [Suspect]
     Active Substance: RANITIDINE
     Indication: Dyspepsia
     Dosage: TOOK DAILY WHEN I WAS YOUNGER / TOOK OCCASIONALLY OR AS NEEDED IN THE PAST 10 YRS|25 MG|BOTH
     Route: 065
     Dates: start: 198001, end: 201910
  14. RANITIDINE [Suspect]
     Active Substance: RANITIDINE
     Indication: Dyspepsia
     Dosage: TOOK DAILY WHEN I WAS YOUNGER / TOOK OCCASIONALLY OR AS NEEDED IN THE PAST 10 YRS|75 MG|OVER THE COU
     Route: 065
     Dates: start: 198001, end: 201910
  15. RANITIDINE [Suspect]
     Active Substance: RANITIDINE
     Indication: Abdominal discomfort
     Dosage: 150 MG, QD
     Route: 065
     Dates: start: 198001, end: 201910
  16. RANITIDINE [Suspect]
     Active Substance: RANITIDINE
     Indication: Gastrooesophageal reflux disease
     Dosage: 150 MG, QD
     Route: 065
     Dates: start: 198001, end: 201910
  17. RANITIDINE [Suspect]
     Active Substance: RANITIDINE
     Indication: Dyspepsia
     Dosage: TOOK DAILY WHEN I WAS YOUNGER / TOOK OCCASIONALLY OR AS NEEDED IN THE PAST 10 YRS|75 MG|OVER THE COU
     Route: 065
     Dates: start: 198001, end: 201910
  18. RANITIDINE [Suspect]
     Active Substance: RANITIDINE
     Indication: Dyspepsia
     Dosage: 150 MG, QD
     Route: 065
     Dates: start: 198001, end: 201910
  19. RANITIDINE [Suspect]
     Active Substance: RANITIDINE
     Indication: Abdominal discomfort
     Dosage: UNK
  20. RANITIDINE [Suspect]
     Active Substance: RANITIDINE
     Indication: Gastrooesophageal reflux disease
     Dosage: UNK

REACTIONS (1)
  - Breast cancer [Unknown]
